FAERS Safety Report 16902511 (Version 2)
Quarter: 2019Q4

REPORT INFORMATION
  Report Type: Spontaneous
  Country: US (occurrence: US)
  Receive Date: 20191010
  Receipt Date: 20191129
  Transmission Date: 20200122
  Serious: Yes (Other)
  Sender: FDA-Public Use
  Company Number: US-PFIZER INC-2019436455

PATIENT
  Age: 73 Year
  Sex: Female
  Weight: 77.11 kg

DRUGS (1)
  1. PHENYTOIN. [Suspect]
     Active Substance: PHENYTOIN
     Dosage: UNK

REACTIONS (4)
  - Cerebrovascular accident [Unknown]
  - Kidney infection [Unknown]
  - Thrombosis [Unknown]
  - Tremor [Unknown]
